FAERS Safety Report 7944488-8 (Version None)
Quarter: 2011Q4

REPORT INFORMATION
  Report Type: 
  Country: None (occurrence: None)
  Receive Date: 20111114
  Receipt Date: 20110810
  Transmission Date: 20120403
  Serious: No
  Sender: FDA-Public Use
  Company Number: 1000022800

PATIENT
  Age: 62 Year
  Sex: Male

DRUGS (16)
  1. MOTRIN [Concomitant]
  2. SAVELLA [Suspect]
     Indication: PAIN IN EXTREMITY
     Dosage: 12.5 MG (12.5 MG, E), ORAL;25 MG (12.5 MG, 2 IN 1 D), ORAL
     Route: 048
     Dates: start: 20110808, end: 20110808
  3. SAVELLA [Suspect]
     Indication: BACK PAIN
     Dosage: 12.5 MG (12.5 MG, E), ORAL;25 MG (12.5 MG, 2 IN 1 D), ORAL
     Route: 048
     Dates: start: 20110808, end: 20110808
  4. SAVELLA [Suspect]
     Indication: PAIN IN EXTREMITY
     Dosage: 12.5 MG (12.5 MG, E), ORAL;25 MG (12.5 MG, 2 IN 1 D), ORAL
     Route: 048
     Dates: start: 20110809
  5. SAVELLA [Suspect]
     Indication: BACK PAIN
     Dosage: 12.5 MG (12.5 MG, E), ORAL;25 MG (12.5 MG, 2 IN 1 D), ORAL
     Route: 048
     Dates: start: 20110809
  6. LISINOPRIL [Concomitant]
  7. SAVELLA [Suspect]
     Indication: BACK PAIN
     Dosage: 50 MG (25 MG, 2 IN 1 D), ORAL
     Route: 048
     Dates: start: 20110401, end: 20110401
  8. SAVELLA [Suspect]
     Indication: PAIN IN EXTREMITY
     Dosage: 50 MG (25 MG, 2 IN 1 D), ORAL
     Route: 048
     Dates: start: 20110401, end: 20110401
  9. HYDROCHLOROTHIAZIDE [Concomitant]
  10. TEMAZEPAM [Concomitant]
  11. DOCUSATE SODIUM (DOCUSATE SODIUM) (DOCUSATE SODIUM) [Concomitant]
  12. LORATADINE (LORATADINE) (LORATADINE) [Concomitant]
  13. TRAMADOL HCL [Concomitant]
  14. SAVELLA [Suspect]
     Indication: PAIN IN EXTREMITY
     Dosage: 12.5 MG (12.5 MG, E), ORAL;25 MG (12.5 MG, 2 IN 1 D), ORAL
     Route: 048
     Dates: start: 20110401, end: 20110401
  15. SAVELLA [Suspect]
     Indication: BACK PAIN
     Dosage: 12.5 MG (12.5 MG, E), ORAL;25 MG (12.5 MG, 2 IN 1 D), ORAL
     Route: 048
     Dates: start: 20110401, end: 20110401
  16. FLEXERIL (CYCLOBENZAPRINE) (CYCLOBENZAPRINE) [Concomitant]

REACTIONS (4)
  - DIZZINESS [None]
  - CONSTIPATION [None]
  - DYSURIA [None]
  - FEELING ABNORMAL [None]
